FAERS Safety Report 9526572 (Version 4)
Quarter: 2014Q1

REPORT INFORMATION
  Report Type: Spontaneous
  Country: US (occurrence: US)
  Receive Date: 20130916
  Receipt Date: 20140321
  Transmission Date: 20141002
  Serious: Yes (Hospitalization, Other)
  Sender: FDA-Public Use
  Company Number: US-PFIZER INC-2013129803

PATIENT
  Age: 40 Year
  Sex: Female

DRUGS (3)
  1. DILANTIN [Suspect]
     Indication: CONVULSION
     Dosage: 100 MG, 3X/DAY
     Route: 048
     Dates: start: 20010714
  2. CLONIDINE [Concomitant]
     Dosage: 0.2 MG, 3X/DAY
     Route: 048
     Dates: start: 20010721
  3. PERCOCET [Concomitant]
     Indication: PAIN
     Dosage: 1 TO 2 (5MG) EVERY FOUR TO SIX HOURS AS NEEDED
     Route: 048
     Dates: start: 20010721

REACTIONS (2)
  - Stevens-Johnson syndrome [Unknown]
  - Toxic epidermal necrolysis [Unknown]
